FAERS Safety Report 4964528-8 (Version None)
Quarter: 2006Q2

REPORT INFORMATION
  Report Type: 
  Country: None (occurrence: None)
  Receive Date: 20060406
  Receipt Date: 20051220
  Transmission Date: 20061013
  Serious: Yes (Death)
  Sender: FDA-Public Use
  Company Number: 2005/00178

PATIENT
  Sex: Male

DRUGS (5)
  1. LAMOTRIGINE [Suspect]
     Dosage: 200MG PER DAY
  2. DYDROGESTERONE TAB [Concomitant]
  3. PROMETHAZINE [Concomitant]
  4. FOLIC ACID [Concomitant]
  5. VALPROATE SODIUM [Concomitant]

REACTIONS (6)
  - CAESAREAN SECTION [None]
  - CLEFT LIP [None]
  - CLEFT PALATE [None]
  - CONGENITAL FOOT MALFORMATION [None]
  - DRUG EXPOSURE DURING PREGNANCY [None]
  - GASTROSCHISIS [None]
